FAERS Safety Report 4627710-5 (Version None)
Quarter: 2005Q2

REPORT INFORMATION
  Report Type: 
  Country: None (occurrence: None)
  Receive Date: 20050401
  Receipt Date: 20040616
  Transmission Date: 20051028
  Serious: Yes (Death)
  Sender: FDA-Public Use
  Company Number: 8269

PATIENT
  Age: 52 Year
  Sex: Male

DRUGS (1)
  1. AMIODARONE HCL [Suspect]
     Dosage: 450 MG ONCE
     Route: 042

REACTIONS (4)
  - HYPOKALAEMIA [None]
  - SUDDEN DEATH [None]
  - TORSADE DE POINTES [None]
  - VENTRICULAR FIBRILLATION [None]
